FAERS Safety Report 7569157-8 (Version None)
Quarter: 2011Q2

REPORT INFORMATION
  Report Type: 
  Country: None (occurrence: None)
  Receive Date: 20110623
  Receipt Date: 20110609
  Transmission Date: 20111010
  Serious: Yes (Hospitalization, Other)
  Sender: FDA-Public Use
  Company Number: PHHY2011SG42393

PATIENT
  Sex: Male

DRUGS (6)
  1. MIXTARD HUMAN 70/30 [Concomitant]
  2. GLEEVEC [Suspect]
     Indication: CHRONIC MYELOID LEUKAEMIA
     Dosage: 400 MG, DAILY
     Route: 048
     Dates: start: 20040430
  3. SIMVASTATIN [Concomitant]
     Dosage: 20 MG, UNK
  4. INHALATION [Concomitant]
  5. NIFEDIPINE [Concomitant]
     Dosage: 30 MG, UNK
  6. LOSARTAN POTASSIUM [Concomitant]

REACTIONS (3)
  - INFECTIVE EXACERBATION OF CHRONIC OBSTRUCTIVE AIRWAYS DISEASE [None]
  - CHRONIC OBSTRUCTIVE PULMONARY DISEASE [None]
  - DYSPNOEA [None]
